FAERS Safety Report 6660298-6 (Version None)
Quarter: 2010Q1

REPORT INFORMATION
  Report Type: 
  Country: None (occurrence: None)
  Receive Date: 20100331
  Receipt Date: 20100309
  Transmission Date: 20100710
  Serious: No
  Sender: FDA-Public Use
  Company Number: 2010BI003842

PATIENT
  Age: 51 Year
  Sex: Female

DRUGS (1)
  1. TYSABRI [Suspect]
     Indication: MULTIPLE SCLEROSIS
     Route: 042
     Dates: start: 20090724

REACTIONS (7)
  - GLOSSODYNIA [None]
  - LIP PAIN [None]
  - NASAL CONGESTION [None]
  - ORAL PAIN [None]
  - RHINORRHOEA [None]
  - TOOTHACHE [None]
  - VAGINAL INFECTION [None]
